FAERS Safety Report 9246202 (Version 2)
Quarter: 2013Q3

REPORT INFORMATION
  Report Type: Report from Study
  Country: BR (occurrence: BR)
  Receive Date: 20130422
  Receipt Date: 20130708
  Transmission Date: 20140515
  Serious: Yes (Hospitalization)
  Sender: FDA-Public Use
  Company Number: BR-ELI_LILLY_AND_COMPANY-BR201304003510

PATIENT
  Age: 72 Year
  Sex: Female
  Weight: 50 kg

DRUGS (4)
  1. TERIPARATIDE [Suspect]
     Indication: OSTEOPOROSIS
     Dosage: 20 UG, BID
     Route: 058
     Dates: start: 20120401
  2. COMBIGAN [Concomitant]
     Indication: SLEEP DISORDER
     Dosage: UNK, UNKNOWN
     Route: 065
  3. CITALOR [Concomitant]
     Indication: BLOOD CHOLESTEROL
     Dosage: UNK, UNKNOWN
     Route: 065
  4. CALCIUM [Concomitant]
     Dosage: UNK, UNKNOWN
     Route: 065

REACTIONS (8)
  - Abdominal hernia [Recovering/Resolving]
  - Infection [Recovering/Resolving]
  - Infection [Unknown]
  - Hernia [Unknown]
  - Patient-device incompatibility [Unknown]
  - Memory impairment [Recovering/Resolving]
  - Overdose [Unknown]
  - Inappropriate schedule of drug administration [Unknown]
